FAERS Safety Report 16198241 (Version 1)
Quarter: 2019Q2

REPORT INFORMATION
  Report Type: Spontaneous
  Country: RO (occurrence: RO)
  Receive Date: 20190415
  Receipt Date: 20190415
  Transmission Date: 20190711
  Serious: Yes (Other)
  Sender: FDA-Public Use
  Company Number: RO-TEVA-2019-RO-1038372

PATIENT
  Age: 13 Year
  Sex: Female
  Weight: 51 kg

DRUGS (3)
  1. RISPERIDONE. [Suspect]
     Active Substance: RISPERIDONE
     Indication: PSYCHOTIC DISORDER
     Dosage: 4.5 MILLIGRAM DAILY;
     Route: 065
  2. RISPERIDONE. [Suspect]
     Active Substance: RISPERIDONE
     Dosage: 1 MILLIGRAM DAILY;
     Route: 065
  3. LORAZEPAM. [Concomitant]
     Active Substance: LORAZEPAM
     Dosage: FOR TWO WEEKS WITH GRADUALLY REDUCTION OF DOSES
     Route: 065

REACTIONS (6)
  - Breast enlargement [Unknown]
  - Galactorrhoea [Unknown]
  - Hormone level abnormal [Recovered/Resolved]
  - Weight increased [Unknown]
  - Pituitary tumour benign [Recovered/Resolved]
  - Menstrual disorder [Unknown]
